FAERS Safety Report 5889108-1 (Version None)
Quarter: 2008Q3

REPORT INFORMATION
  Report Type: 
  Country: None (occurrence: None)
  Receive Date: 20080910
  Receipt Date: 20080829
  Transmission Date: 20090109
  Serious: Yes (Other)
  Sender: FDA-Public Use
  Company Number: AEITA200800208

PATIENT
  Age: 13 Year

DRUGS (3)
  1. IGIV  (IMMUNE GLOBULIN IV (HUMAN), CAPRYLATE/CHROMATOGRAPHY PURIFIED) [Suspect]
     Indication: IMMUNODEFICIENCY COMMON VARIABLE
     Dosage: IV
     Route: 042
  2. CORTICOSTEROIDS  NOS [Concomitant]
  3. ANTIHISTAMINES [Concomitant]

REACTIONS (4)
  - CHILLS [None]
  - CYANOSIS [None]
  - HYPOTENSION [None]
  - PYREXIA [None]
